FAERS Safety Report 21093146 (Version 1)
Quarter: 2022Q3

REPORT INFORMATION
  Report Type: Spontaneous
  Country: US (occurrence: US)
  Receive Date: 20220718
  Receipt Date: 20220718
  Transmission Date: 20221026
  Serious: Yes (Other)
  Sender: FDA-Public Use
  Company Number: US-CIPLA (EU) LIMITED-2022US04422

PATIENT
  Sex: Female

DRUGS (1)
  1. ALBUTEROL [Suspect]
     Active Substance: ALBUTEROL
     Indication: Bronchitis
     Dosage: 2 PUFFS, QID- 4 TIMES A DAY

REACTIONS (8)
  - Multiple sclerosis [Unknown]
  - Foreign body in throat [Unknown]
  - Device loosening [Unknown]
  - Dyspnoea [Unknown]
  - Asthma [Unknown]
  - Device issue [Unknown]
  - Wrong technique in device usage process [Unknown]
  - Product design issue [Unknown]
